FAERS Safety Report 17793919 (Version 4)
Quarter: 2020Q3

REPORT INFORMATION
  Report Type: Report from Study
  Country: ES (occurrence: ES)
  Receive Date: 20200515
  Receipt Date: 20200807
  Transmission Date: 20201102
  Serious: Yes (Hospitalization)
  Sender: FDA-Public Use
  Company Number: ES-JNJFOC-20200509074

PATIENT
  Age: 72 Year
  Sex: Male
  Weight: 86 kg

DRUGS (13)
  1. PARACETAMOL [Concomitant]
     Active Substance: ACETAMINOPHEN
     Indication: ABDOMINAL PAIN
     Dates: start: 202002
  2. PLETAL [Concomitant]
     Active Substance: CILOSTAZOL
     Indication: INTERMITTENT CLAUDICATION
     Dates: start: 2013
  3. ERDAFITINIB. [Suspect]
     Active Substance: ERDAFITINIB
     Indication: TRANSITIONAL CELL CARCINOMA
     Route: 048
     Dates: start: 20200310, end: 20200323
  4. ALLOPURINOL. [Concomitant]
     Active Substance: ALLOPURINOL
     Indication: HYPERURICAEMIA
     Dates: start: 2015
  5. LANSOPRAZOLE. [Concomitant]
     Active Substance: LANSOPRAZOLE
     Indication: GASTROINTESTINAL DISORDER THERAPY
     Dates: start: 2010
  6. OMNIC [Concomitant]
     Active Substance: TAMSULOSIN HYDROCHLORIDE
     Indication: PROSTATIC OBSTRUCTION
     Dates: start: 2017
  7. ATORVASTATIN [Concomitant]
     Active Substance: ATORVASTATIN
     Indication: HYPERLIPIDAEMIA
     Dates: start: 2015
  8. ATROVENT [Concomitant]
     Active Substance: IPRATROPIUM BROMIDE
     Indication: CHRONIC OBSTRUCTIVE PULMONARY DISEASE
     Dates: start: 2018
  9. FORTASEC                           /00384301/ [Concomitant]
     Active Substance: LOPERAMIDE
     Indication: DIARRHOEA
     Dates: start: 20200324
  10. ERDAFITINIB. [Suspect]
     Active Substance: ERDAFITINIB
     Route: 048
     Dates: start: 20200608
  11. ERDAFITINIB. [Suspect]
     Active Substance: ERDAFITINIB
     Route: 048
     Dates: start: 20200328, end: 20200504
  12. ADIRO [Concomitant]
     Active Substance: ASPIRIN
     Indication: INTERMITTENT CLAUDICATION
     Dates: start: 2013
  13. AMLODIPINE [Concomitant]
     Active Substance: AMLODIPINE BESYLATE
     Indication: HYPERTENSION
     Dates: start: 2015

REACTIONS (2)
  - Back pain [Not Recovered/Not Resolved]
  - Hyponatraemia [Recovering/Resolving]

NARRATIVE: CASE EVENT DATE: 20200423
